FAERS Safety Report 8255376 (Version 3)
Quarter: 2013Q2

REPORT INFORMATION
  Report Type: Report from Study
  Country: MX (occurrence: MX)
  Receive Date: 20111118
  Receipt Date: 20130625
  Transmission Date: 20140414
  Serious: Yes (Hospitalization, Other)
  Sender: FDA-Public Use
  Company Number: PHHY2011MX099424

PATIENT
  Age: 86 Year
  Sex: Female

DRUGS (8)
  1. EXELON PATCH [Suspect]
     Indication: DEMENTIA ALZHEIMER^S TYPE
     Dosage: 4.6 MG\24HRS
     Route: 062
     Dates: start: 20110914
  2. LACTULOSE [Concomitant]
     Dosage: 1 DF, QD
     Dates: start: 201107
  3. MICARDIS [Concomitant]
     Dosage: 1 DF, QD
     Dates: start: 201007
  4. AMLODIPINE [Concomitant]
     Dosage: 1 DF, QD
     Dates: start: 201107
  5. CORASPIR [Concomitant]
     Dosage: UNK UKN, UNK
  6. LYRICA [Concomitant]
     Dosage: 1 DF, QD
     Dates: start: 200607
  7. EUTEBROL [Concomitant]
     Dosage: 1 DF, QD
     Dates: start: 2011
  8. REDOXON [Concomitant]
     Dosage: UNK UKN, UNK

REACTIONS (4)
  - Appendicitis [Recovered/Resolved]
  - Urinary tract infection [Recovered/Resolved]
  - Sepsis [Recovered/Resolved]
  - Pneumonia [Recovered/Resolved]
